FAERS Safety Report 7026480-3 (Version None)
Quarter: 2010Q3

REPORT INFORMATION
  Report Type: 
  Country: None (occurrence: None)
  Receive Date: 20100929
  Receipt Date: 20100922
  Transmission Date: 20110219
  Serious: Yes (Death, Other)
  Sender: FDA-Public Use
  Company Number: WAES 1005DEU00095

PATIENT
  Age: 80 Year
  Sex: Female

DRUGS (3)
  1. FOSAMAX [Suspect]
     Indication: OSTEOPOROSIS
     Dosage: PO
     Route: 048
  2. CORTICOSTEROIDS (UNSPECIFIED) [Concomitant]
  3. PHENPROCOUMON [Concomitant]

REACTIONS (6)
  - IMPAIRED HEALING [None]
  - OSTEONECROSIS OF JAW [None]
  - PAIN [None]
  - TOOTH DISORDER [None]
  - TOOTH EXTRACTION [None]
  - WOUND DEHISCENCE [None]
